FAERS Safety Report 8036537-6 (Version None)
Quarter: 2012Q1

REPORT INFORMATION
  Report Type: 
  Country: None (occurrence: None)
  Receive Date: 20120109
  Receipt Date: 20111226
  Transmission Date: 20120608
  Serious: No
  Sender: FDA-Public Use
  Company Number: DSJ-2011-18778

PATIENT
  Age: 82 Year
  Sex: Male

DRUGS (3)
  1. CETAPRIL (ALACEPRIL) (ALACEPRIL) [Concomitant]
  2. OLMESARTAN MEDOXOMIL [Suspect]
     Indication: ESSENTIAL HYPERTENSION
     Dosage: 20 MG,PER ORAL ; 10 MG,PER ORAL
     Route: 048
     Dates: start: 20100428, end: 20100519
  3. OLMESARTAN MEDOXOMIL [Suspect]
     Indication: ESSENTIAL HYPERTENSION
     Dosage: 20 MG,PER ORAL ; 10 MG,PER ORAL
     Route: 048
     Dates: start: 20100309, end: 20100427

REACTIONS (1)
  - ORTHOSTATIC HYPOTENSION [None]
